FAERS Safety Report 7490831-6 (Version None)
Quarter: 2011Q2

REPORT INFORMATION
  Report Type: 
  Country: None (occurrence: None)
  Receive Date: 20110519
  Receipt Date: 20110513
  Transmission Date: 20111010
  Serious: Yes (Hospitalization, Other)
  Sender: FDA-Public Use
  Company Number: US-B.I. PHARMACEUTICALS,INC./RIDGEFIELD-2009-BP-04321BP

PATIENT
  Sex: Female

DRUGS (5)
  1. SPIRIVA [Suspect]
     Indication: BRONCHIAL DISORDER
     Dosage: 18 MCG
     Route: 055
  2. SPIRIVA [Suspect]
     Indication: CHRONIC OBSTRUCTIVE PULMONARY DISEASE
     Route: 055
     Dates: start: 20061201
  3. PROVENTIL-HFA [Concomitant]
     Indication: ASTHMA
  4. SPIRIVA [Suspect]
     Indication: ASTHMA
     Dosage: 18 MCG
     Route: 055
     Dates: start: 20061201, end: 20091006
  5. SYMBICORT [Concomitant]
     Indication: ASTHMA
     Dates: start: 20091006

REACTIONS (13)
  - PERITONITIS [None]
  - NAUSEA [None]
  - GASTRIC HAEMORRHAGE [None]
  - GAIT DISTURBANCE [None]
  - DYSURIA [None]
  - COLON INJURY [None]
  - VERTIGO [None]
  - ANXIETY [None]
  - DRY MOUTH [None]
  - LOSS OF CONSCIOUSNESS [None]
  - LUNG NEOPLASM MALIGNANT [None]
  - NEUROPATHY PERIPHERAL [None]
  - COLONIC POLYP [None]
